FAERS Safety Report 6532599-3 (Version None)
Quarter: 2010Q1

REPORT INFORMATION
  Report Type: 
  Country: None (occurrence: None)
  Receive Date: 20100111
  Receipt Date: 20091227
  Transmission Date: 20100710
  Serious: No
  Sender: FDA-Public Use
  Company Number: JP-ROCHE-678333

PATIENT
  Age: 25 Year
  Sex: Female

DRUGS (1)
  1. TAMIFLU [Suspect]
     Dosage: ACTION TAKEN: UNKNOWN.
     Route: 048
     Dates: start: 20091225

REACTIONS (2)
  - ABDOMINAL PAIN [None]
  - ACCIDENTAL OVERDOSE [None]
